FAERS Safety Report 21206724 (Version 1)
Quarter: 2022Q3

REPORT INFORMATION
  Report Type: Spontaneous
  Country: US (occurrence: None)
  Receive Date: 20220811
  Receipt Date: 20220811
  Transmission Date: 20221026
  Serious: Yes (Other)
  Sender: FDA-Public Use
  Company Number: None

PATIENT
  Age: 44 Year
  Sex: Female
  Weight: 65.25 kg

DRUGS (10)
  1. OLANZAPINE [Suspect]
     Active Substance: OLANZAPINE
     Indication: Bipolar disorder
     Dosage: OTHER QUANTITY : 30 TABLET(S);?FREQUENCY : DAILY;?
     Route: 048
     Dates: start: 20220729, end: 20220808
  2. OLANZAPINE [Suspect]
     Active Substance: OLANZAPINE
     Indication: Mania
  3. DIVALPROEX SODIUM [Concomitant]
     Active Substance: DIVALPROEX SODIUM
  4. TOPIRAMATE [Concomitant]
     Active Substance: TOPIRAMATE
  5. DULOXETINE [Concomitant]
     Active Substance: DULOXETINE
  6. Hydroxyzine Pamiate [Concomitant]
  7. EVENING PRIMROSE OIL\HERBALS [Concomitant]
     Active Substance: EVENING PRIMROSE OIL\HERBALS
  8. ALIGN [Concomitant]
     Active Substance: BIFIDOBACTERIUM LONGUM SUBSP. INFANTIS
  9. Nitrate Acetyl Cysteine [Concomitant]
  10. VITAMINS [Concomitant]
     Active Substance: VITAMINS

REACTIONS (23)
  - Migraine [None]
  - Somnolence [None]
  - Vestibular disorder [None]
  - Decreased activity [None]
  - Nausea [None]
  - Vomiting [None]
  - Photophobia [None]
  - Hyperacusis [None]
  - Oedema peripheral [None]
  - Back pain [None]
  - Hypoaesthesia [None]
  - Extrapyramidal disorder [None]
  - Hyperkinesia [None]
  - Dyspepsia [None]
  - Flatulence [None]
  - Abdominal pain [None]
  - Abdominal distension [None]
  - Constipation [None]
  - Fall [None]
  - Thermal burn [None]
  - Impaired driving ability [None]
  - Disturbance in social behaviour [None]
  - Abnormal behaviour [None]

NARRATIVE: CASE EVENT DATE: 20220729
